FAERS Safety Report 4796353-5 (Version None)
Quarter: 2005Q4

REPORT INFORMATION
  Report Type: 
  Country: None (occurrence: None)
  Receive Date: 20051006
  Receipt Date: 20051006
  Transmission Date: 20060501
  Serious: Yes (Life-Threatening, Hospitalization)
  Sender: FDA-Public Use
  Company Number: None

PATIENT
  Age: 83 Year
  Sex: Male
  Weight: 65 kg

DRUGS (9)
  1. ATENOLOL [Suspect]
     Indication: HYPERTENSION
     Dosage: 50 MG QD
  2. METOPROLOL [Suspect]
     Indication: HYPERTENSION
     Dosage: 25 MG  QD
  3. CARVEDILOL [Suspect]
     Indication: HYPERTENSION
     Dosage: 12.5 MG BID
  4. SIMVASTATIN [Concomitant]
  5. ASPIRIN [Concomitant]
  6. APAP TAB [Concomitant]
  7. LANSOPRAZOLE [Concomitant]
  8. FUROSEMIDE [Concomitant]
  9. HYDRALAZINE [Concomitant]

REACTIONS (7)
  - BLOOD PRESSURE SYSTOLIC INCREASED [None]
  - BRADYCARDIA [None]
  - DIZZINESS [None]
  - HYPOTENSION [None]
  - INCORRECT DOSE ADMINISTERED [None]
  - SYNCOPE [None]
  - VISION BLURRED [None]
